FAERS Safety Report 15597619 (Version 4)
Quarter: 2018Q4

REPORT INFORMATION
  Report Type: Spontaneous
  Country: GB (occurrence: GB)
  Receive Date: 20181108
  Receipt Date: 20181214
  Transmission Date: 20190205
  Serious: Yes (Death, Life-Threatening, Hospitalization)
  Sender: FDA-Public Use
  Company Number: GB-FRESENIUS KABI-FK201811495

PATIENT
  Age: 61 Year
  Sex: Female

DRUGS (1)
  1. PACLITAXEL INJECTION [Suspect]
     Active Substance: PACLITAXEL
     Indication: ADJUVANT THERAPY
     Dosage: CYCLE NO. 7
     Route: 042
     Dates: start: 20180816, end: 20180927

REACTIONS (3)
  - Acute interstitial pneumonitis [Fatal]
  - Cough [Unknown]
  - Respiratory failure [Unknown]

NARRATIVE: CASE EVENT DATE: 20181006
